FAERS Safety Report 6300448-4 (Version None)
Quarter: 2009Q3

REPORT INFORMATION
  Report Type: 
  Country: None (occurrence: None)
  Receive Date: 20090806
  Receipt Date: 20081013
  Transmission Date: 20100115
  Serious: No
  Sender: FDA-Public Use
  Company Number: US-ABBOTT-08P-163-0481395-00

PATIENT
  Sex: Female

DRUGS (3)
  1. DEPAKOTE ER [Suspect]
     Indication: CONVULSION
     Route: 048
     Dates: start: 19980101
  2. DEPAKOTE ER [Suspect]
     Indication: MENTAL DISORDER
     Route: 048
     Dates: end: 20060101
  3. RISPERIDONE [Concomitant]
     Indication: SCHIZOAFFECTIVE DISORDER
     Route: 030

REACTIONS (3)
  - FATIGUE [None]
  - INCONTINENCE [None]
  - LOSS OF CONSCIOUSNESS [None]
